FAERS Safety Report 4665136-9 (Version None)
Quarter: 2005Q2

REPORT INFORMATION
  Report Type: 
  Country: None (occurrence: None)
  Receive Date: 20050517
  Receipt Date: 20050504
  Transmission Date: 20051028
  Serious: Yes (Hospitalization)
  Sender: FDA-Public Use
  Company Number: 2005069946

PATIENT
  Age: 47 Year
  Sex: Male

DRUGS (1)
  1. CEFPODOXIME PROXETIL [Suspect]
     Indication: SINUSITIS
     Dosage: 400 MG (DAILY), ORAL
     Route: 048
     Dates: start: 20050104, end: 20050105

REACTIONS (1)
  - PANCREATITIS ACUTE [None]
